FAERS Safety Report 19189731 (Version 1)
Quarter: 2021Q2

REPORT INFORMATION
  Report Type: Spontaneous
  Country: US (occurrence: US)
  Receive Date: 20210428
  Receipt Date: 20210428
  Transmission Date: 20210717
  Serious: No
  Sender: FDA-Public Use
  Company Number: US-BIOGEN-2021BI01001064

PATIENT
  Age: 43 Year
  Sex: Female

DRUGS (1)
  1. VUMERITY [Suspect]
     Active Substance: DIROXIMEL FUMARATE
     Indication: MULTIPLE SCLEROSIS
     Route: 048
     Dates: start: 20210402, end: 20210410

REACTIONS (11)
  - Abdominal pain upper [Unknown]
  - Rash pruritic [Recovered/Resolved]
  - Cough [Recovered/Resolved]
  - Flushing [Recovered/Resolved]
  - Swollen tongue [Unknown]
  - Constipation [Unknown]
  - Abdominal pain [Unknown]
  - Dysuria [Unknown]
  - Multiple sclerosis relapse [Unknown]
  - Flatulence [Not Recovered/Not Resolved]
  - Abdominal distension [Unknown]

NARRATIVE: CASE EVENT DATE: 202104
